FAERS Safety Report 7435975-X (Version None)
Quarter: 2011Q2

REPORT INFORMATION
  Report Type: 
  Country: None (occurrence: None)
  Receive Date: 20110418
  Receipt Date: 20110411
  Transmission Date: 20111010
  Serious: Yes (Hospitalization)
  Sender: FDA-Public Use
  Company Number: UTC-005840

PATIENT
  Age: 39 Year
  Sex: Female

DRUGS (5)
  1. TYVASO [Suspect]
     Indication: PULMONARY ARTERIAL HYPERTENSION
     Dosage: 216 MCG (54 MCG,4 IN 1 D), INHALATION
     Route: 055
     Dates: start: 20100910
  2. ADCIRCA [Concomitant]
  3. LETAIRIS [Concomitant]
  4. COUMADIN (WARFARIN SODIIUM) [Concomitant]
  5. DIURETICS (DIURETICS) [Concomitant]

REACTIONS (3)
  - FATIGUE [None]
  - COUGH [None]
  - DYSPNOEA [None]
